FAERS Safety Report 4323210-0 (Version None)
Quarter: 2004Q1

REPORT INFORMATION
  Report Type: 
  Country: None (occurrence: None)
  Receive Date: 20040322
  Receipt Date: 20040310
  Transmission Date: 20041129
  Serious: Yes (Death)
  Sender: FDA-Public Use
  Company Number: US-JNJFOC-20040200686

PATIENT
  Age: 88 Year
  Sex: Male

DRUGS (13)
  1. REMINYL [Suspect]
     Indication: MEMORY IMPAIRMENT
     Dosage: 8 MG, 2 IN 1 DAY, ORAL
     Route: 048
     Dates: start: 20030807
  2. REMINYL [Suspect]
     Indication: MEMORY IMPAIRMENT
     Dosage: 8 MG, 2 IN 1 DAY, ORAL
     Route: 048
     Dates: start: 20031013
  3. NITRO-DUR (GLYCERYL TRINITRATE) PATCH [Concomitant]
  4. NITROGLYCERIN [Concomitant]
  5. THEOPHYLLINE [Concomitant]
  6. PREVACID [Concomitant]
  7. FUROSEMIDE [Concomitant]
  8. LORAZEPAM [Concomitant]
  9. LORATADINE [Concomitant]
  10. KLOR-CON [Concomitant]
  11. ZESTRIL [Concomitant]
  12. PROCANBID [Concomitant]
  13. ASPIRIN [Concomitant]

REACTIONS (10)
  - ABDOMINAL PAIN UPPER [None]
  - AGITATION [None]
  - CONFUSIONAL STATE [None]
  - CYANOSIS [None]
  - DYSARTHRIA [None]
  - DYSPNOEA [None]
  - HAEMATEMESIS [None]
  - HIP FRACTURE [None]
  - MYOCARDIAL INFARCTION [None]
  - VOMITING PROJECTILE [None]
